FAERS Safety Report 8362248-3 (Version None)
Quarter: 2012Q2

REPORT INFORMATION
  Report Type: 
  Country: None (occurrence: None)
  Receive Date: 20120515
  Receipt Date: 20120507
  Transmission Date: 20120825
  Serious: Yes (Life-Threatening)
  Sender: FDA-Public Use
  Company Number: JP-BAYER-2012-039555

PATIENT
  Age: 39 Year
  Sex: Female
  Weight: 51 kg

DRUGS (7)
  1. LITIOMAL [Concomitant]
     Route: 048
  2. ETICALM [Concomitant]
     Route: 048
  3. VOLTAREN [Concomitant]
     Dosage: DAILY DOSE 75 MG
     Route: 048
     Dates: start: 20111101, end: 20111101
  4. OLOPATADINE HCL [Interacting]
     Indication: SEASONAL ALLERGY
     Dosage: 5 MG, QD
     Route: 048
     Dates: start: 20120201
  5. YAZ [Suspect]
     Indication: DYSMENORRHOEA
     Dosage: QD
     Route: 048
     Dates: start: 20111001, end: 20120401
  6. GOODMIN [Concomitant]
     Route: 048
  7. CLONAZEPAM [Concomitant]
     Route: 048

REACTIONS (1)
  - SUICIDE ATTEMPT [None]
